FAERS Safety Report 7381964-3 (Version None)
Quarter: 2011Q1

REPORT INFORMATION
  Report Type: 
  Country: None (occurrence: None)
  Receive Date: 20110329
  Receipt Date: 20110217
  Transmission Date: 20110831
  Serious: Yes (Other)
  Sender: FDA-Public Use
  Company Number: US-BAXTER-2010BH003348

PATIENT
  Age: 58 Year
  Sex: Male
  Weight: 81 kg

DRUGS (23)
  1. PROTAMINE SULFATE [Concomitant]
     Indication: PRODUCT USED FOR UNKNOWN INDICATION
     Route: 042
  2. TOPROL-XL [Concomitant]
     Indication: PRODUCT USED FOR UNKNOWN INDICATION
     Route: 065
  3. FIORICET [Concomitant]
     Indication: PRODUCT USED FOR UNKNOWN INDICATION
     Route: 048
  4. HEPARIN SODIUM INJECTION [Suspect]
     Indication: MYOCARDIAL INFARCTION
     Route: 042
     Dates: start: 20071219, end: 20071219
  5. PERCOCET [Concomitant]
     Indication: PRODUCT USED FOR UNKNOWN INDICATION
     Route: 065
  6. BENICAR [Concomitant]
     Indication: PRODUCT USED FOR UNKNOWN INDICATION
     Route: 065
  7. HEPARIN SODIUM INJECTION [Suspect]
     Route: 042
     Dates: start: 20071224, end: 20071224
  8. HEPARIN SODIUM INJECTION [Suspect]
     Route: 041
     Dates: start: 20071223
  9. PANTOPRAZOLE [Concomitant]
     Indication: PRODUCT USED FOR UNKNOWN INDICATION
     Route: 065
  10. ARGATROBAN [Concomitant]
     Indication: PRODUCT USED FOR UNKNOWN INDICATION
     Route: 042
  11. PROSTACYCLIN [Concomitant]
     Indication: PRODUCT USED FOR UNKNOWN INDICATION
     Route: 042
  12. RESTORIL [Concomitant]
     Indication: PRODUCT USED FOR UNKNOWN INDICATION
     Route: 048
  13. HEPARIN SODIUM INJECTION [Suspect]
     Indication: KNEE ARTHROPLASTY
     Route: 042
     Dates: start: 20071219, end: 20071219
  14. HEPARIN SODIUM INJECTION [Suspect]
     Route: 042
     Dates: start: 20071224, end: 20071224
  15. HEPARIN SODIUM 5,000 UNITS IN DEXTROSE 5% [Suspect]
     Indication: PRODUCT USED FOR UNKNOWN INDICATION
     Route: 041
  16. ALTACE [Concomitant]
     Indication: PRODUCT USED FOR UNKNOWN INDICATION
     Route: 065
  17. ASPIRIN [Concomitant]
     Indication: PRODUCT USED FOR UNKNOWN INDICATION
     Route: 048
  18. COUMADIN [Concomitant]
     Indication: PRODUCT USED FOR UNKNOWN INDICATION
     Route: 065
  19. SIMVASTATIN [Concomitant]
     Indication: PRODUCT USED FOR UNKNOWN INDICATION
     Route: 048
  20. ACETAMINOPHEN [Concomitant]
     Indication: PRODUCT USED FOR UNKNOWN INDICATION
     Route: 048
  21. HEPARIN SODIUM INJECTION [Suspect]
     Route: 041
     Dates: start: 20071223
  22. CRESTOR [Concomitant]
     Indication: PRODUCT USED FOR UNKNOWN INDICATION
     Route: 065
  23. METHYLPREDNISOLONE [Concomitant]
     Indication: PRODUCT USED FOR UNKNOWN INDICATION
     Route: 042

REACTIONS (20)
  - MYOCARDIAL INFARCTION [None]
  - DYSPNOEA [None]
  - BACK PAIN [None]
  - CARDIAC FAILURE CONGESTIVE [None]
  - AORTIC STENOSIS [None]
  - HYPOTENSION [None]
  - MITRAL VALVE INCOMPETENCE [None]
  - DEHYDRATION [None]
  - STAPHYLOCOCCAL INFECTION [None]
  - CHEST PAIN [None]
  - HYPERTENSION [None]
  - IMPETIGO [None]
  - HYPERHIDROSIS [None]
  - SYNCOPE [None]
  - DIZZINESS [None]
  - TRICUSPID VALVE INCOMPETENCE [None]
  - HEADACHE [None]
  - HEPARIN-INDUCED THROMBOCYTOPENIA [None]
  - DYSPNOEA PAROXYSMAL NOCTURNAL [None]
  - ORTHOSTATIC HYPOTENSION [None]
